FAERS Safety Report 6927208-5 (Version None)
Quarter: 2010Q3

REPORT INFORMATION
  Report Type: 
  Country: None (occurrence: None)
  Receive Date: 20100816
  Receipt Date: 20100805
  Transmission Date: 20110219
  Serious: Yes (Death)
  Sender: FDA-Public Use
  Company Number: US-BRISTOL-MYERS SQUIBB COMPANY-15238447

PATIENT
  Age: 68 Year
  Sex: Female
  Weight: 65 kg

DRUGS (21)
  1. CORGARD [Suspect]
     Indication: HYPERTENSION
     Route: 048
     Dates: start: 20070101
  2. ANIDULAFUNGIN [Concomitant]
     Indication: ASPERGILLOSIS
     Route: 042
     Dates: start: 20100721
  3. VORICONAZOLE [Concomitant]
     Indication: ASPERGILLOSIS
     Dosage: REG1:18JUL2010-18JUL2010;REGIME2:200MG BID 19JUL TO 20JUL2010; REG3:260MG QD 21JUL2010-UNK
     Route: 042
     Dates: start: 20100718, end: 20100718
  4. FLUCONAZOLE [Concomitant]
     Dates: start: 20100714, end: 20100721
  5. METHYLPREDNISOLONE [Concomitant]
     Dates: start: 20100719, end: 20100719
  6. FUROSEMIDE [Concomitant]
     Dates: start: 20100719, end: 20100719
  7. PIPERACILLIN AND TAZOBACTAM [Concomitant]
     Dates: start: 20100714, end: 20100722
  8. VANCOMYCIN [Concomitant]
     Dates: start: 20100714
  9. ACYCLOVIR [Concomitant]
     Dates: start: 20100715
  10. ESOMEPRAZOLE MAGNESIUM [Concomitant]
     Dates: start: 20100708
  11. ACETAMINOPHEN [Concomitant]
     Dates: start: 20100714
  12. VITAMIN K TAB [Concomitant]
     Dates: start: 20100714
  13. GLIBENCLAMIDE [Concomitant]
     Dates: start: 20100714
  14. METRONIDAZOLE [Concomitant]
     Dates: start: 20100714
  15. COAPROVEL [Concomitant]
     Dates: start: 20100714
  16. AMIKACIN [Concomitant]
     Dates: start: 20100714, end: 20100719
  17. INSULIN [Concomitant]
     Dates: start: 20100714
  18. PRAVASTATIN [Concomitant]
     Dates: start: 20021212, end: 20100718
  19. POTASSIUM CHLORIDE [Concomitant]
     Dates: start: 20100714, end: 20100722
  20. SODIUM CHLORIDE [Concomitant]
     Dates: start: 20100714
  21. PICLOXYDINE [Concomitant]
     Dates: start: 20100718, end: 20100718

REACTIONS (3)
  - BLOOD POTASSIUM INCREASED [None]
  - BRADYCARDIA [None]
  - HYPOTENSION [None]
